FAERS Safety Report 4338694-1 (Version None)
Quarter: 2004Q2

REPORT INFORMATION
  Report Type: 
  Country: None (occurrence: None)
  Receive Date: 20040409
  Receipt Date: 20040326
  Transmission Date: 20050107
  Serious: Yes (Death)
  Sender: FDA-Public Use
  Company Number: JP-JNJFOC-20040400844

PATIENT
  Age: 85 Year
  Sex: Male

DRUGS (4)
  1. DURAGESIC [Suspect]
     Indication: CANCER PAIN
     Dosage: 2.5 MG, 1 IN 72 HOUR, TRANSDERMAL
     Route: 062
     Dates: start: 20031210, end: 20041224
  2. MORPHINE [Concomitant]
  3. DEXAMETHASONE SODIUM PHOSPHATE [Concomitant]
  4. FUROSEMIDE [Concomitant]

REACTIONS (2)
  - GALLBLADDER CANCER [None]
  - MALIGNANT NEOPLASM PROGRESSION [None]
